FAERS Safety Report 17447008 (Version 3)
Quarter: 2020Q1

REPORT INFORMATION
  Report Type: Report from Study
  Country: BR (occurrence: BR)
  Receive Date: 20200221
  Receipt Date: 20200311
  Transmission Date: 20200409
  Serious: Yes (Death, Hospitalization)
  Sender: FDA-Public Use
  Company Number: BR-UCBSA-2020007609

PATIENT
  Sex: Female
  Weight: 65 kg

DRUGS (7)
  1. ATENOLOL. [Concomitant]
     Active Substance: ATENOLOL
     Indication: HYPERTENSION
     Dosage: UNK
     Route: 048
     Dates: start: 1990
  2. LOSARTAN. [Concomitant]
     Active Substance: LOSARTAN
     Indication: HYPERTENSION
     Dosage: 52 MILLIGRAM, ONCE DAILY (QD)
     Route: 048
     Dates: start: 1990
  3. NIFEDIPINO [Concomitant]
     Active Substance: NIFEDIPINE
     Indication: HYPERTENSION
     Dosage: UNK
     Route: 048
     Dates: start: 1990
  4. CERTOLIZUMAB PEGOL RA [Suspect]
     Active Substance: CERTOLIZUMAB PEGOL
     Indication: RHEUMATOID ARTHRITIS
     Dosage: 200 MILLIGRAM, EV 15 DAYS
     Route: 058
     Dates: end: 20200115
  5. LORATADINA [Concomitant]
     Active Substance: LORATADINE
     Indication: ASTHMA
  6. LORATADINA [Concomitant]
     Active Substance: LORATADINE
     Indication: BRONCHITIS
     Dosage: UNK
     Route: 048
     Dates: start: 2016
  7. HIDROCLOROTIAZIDA [Concomitant]
     Active Substance: HYDROCHLOROTHIAZIDE
     Indication: HYPERTENSION
     Dosage: UNK
     Route: 048
     Dates: start: 1990

REACTIONS (5)
  - Renal failure [Fatal]
  - Weight decreased [Unknown]
  - Pulmonary sepsis [Fatal]
  - Myocardial infarction [Fatal]
  - Anaemia [Unknown]

NARRATIVE: CASE EVENT DATE: 2019
